FAERS Safety Report 6429353-X (Version None)
Quarter: 2009Q4

REPORT INFORMATION
  Report Type: 
  Country: None (occurrence: None)
  Receive Date: 20091105
  Receipt Date: 20090403
  Transmission Date: 20100525
  Serious: No
  Sender: FDA-Public Use
  Company Number: US-ABBOTT-09P-163-0566760-00

PATIENT
  Sex: Male
  Weight: 79.45 kg

DRUGS (8)
  1. KALETRA [Suspect]
     Indication: HIV INFECTION
     Dosage: 200/50 2 TABS
     Route: 048
     Dates: start: 20090309, end: 20090324
  2. CITALOPRAM HYDROBROMIDE [Concomitant]
     Indication: DEPRESSION
     Route: 048
  3. LORATADINE [Concomitant]
     Indication: PRURITUS
     Route: 048
  4. SUBOXONE [Concomitant]
     Indication: DRUG DEPENDENCE
     Route: 048
  5. SPIRONOLACTONE [Concomitant]
     Indication: FLUID RETENTION
     Route: 048
  6. NADOLOL [Concomitant]
     Indication: VARICES OESOPHAGEAL
     Route: 048
  7. ATAZANAVIR [Concomitant]
     Indication: HIV INFECTION
     Dates: start: 20090325
  8. COMBIVIR LAMIZUDINE [Concomitant]
     Indication: HIV INFECTION
     Route: 048
     Dates: start: 20090325

REACTIONS (2)
  - FATIGUE [None]
  - SOMNOLENCE [None]
